FAERS Safety Report 5951109-2 (Version None)
Quarter: 2008Q4

REPORT INFORMATION
  Report Type: 
  Country: None (occurrence: None)
  Receive Date: 20081112
  Receipt Date: 20081112
  Transmission Date: 20090506
  Serious: Yes (Other)
  Sender: FDA-Public Use
  Company Number: None

PATIENT
  Age: 1 Month
  Sex: Male
  Weight: 4.0824 kg

DRUGS (1)
  1. INFANTS MYLICON JOHNSON+JOHNSON MERCK [Suspect]
     Indication: FLATULENCE
     Dosage: 0.3 ML 4-5 TIMES DAILY PO
     Route: 048
     Dates: start: 20081011, end: 20081111

REACTIONS (4)
  - CRYING [None]
  - NO THERAPEUTIC RESPONSE [None]
  - PAIN [None]
  - PRODUCT QUALITY ISSUE [None]
